FAERS Safety Report 4635394-5 (Version None)
Quarter: 2005Q2

REPORT INFORMATION
  Report Type: 
  Country: None (occurrence: None)
  Receive Date: 20050411
  Receipt Date: 20050328
  Transmission Date: 20051028
  Serious: Yes (Life-Threatening, Hospitalization, Disabling, Other)
  Sender: FDA-Public Use
  Company Number: 2005050637

PATIENT
  Age: 66 Year
  Sex: Female
  Weight: 64.4108 kg

DRUGS (2)
  1. NEURONTIN [Suspect]
     Indication: MIGRAINE
     Dosage: 800 MG (3 IN 1 D), ORAL
     Route: 048
     Dates: start: 20040101
  2. QUINAPRIL HCL [Concomitant]

REACTIONS (11)
  - BONE FORMATION DECREASED [None]
  - CONDITION AGGRAVATED [None]
  - DIFFICULTY IN WALKING [None]
  - DRUG INEFFECTIVE [None]
  - FEAR [None]
  - FOOT OPERATION [None]
  - MIGRAINE [None]
  - PAIN [None]
  - PHARMACEUTICAL PRODUCT COMPLAINT [None]
  - ROAD TRAFFIC ACCIDENT [None]
  - STERNAL FRACTURE [None]
